FAERS Safety Report 9669511 (Version 1)
Quarter: 2013Q4

REPORT INFORMATION
  Report Type: Spontaneous
  Country: US (occurrence: None)
  Receive Date: 20131104
  Receipt Date: 20131104
  Transmission Date: 20140711
  Serious: Yes (Other)
  Sender: FDA-Public Use
  Company Number: None

PATIENT
  Age: 37 Year
  Sex: Male
  Weight: 136.08 kg

DRUGS (1)
  1. SAPHRIS [Suspect]
     Indication: BIPOLAR I DISORDER
     Dosage: 1 PILL
     Route: 048
     Dates: start: 20130923, end: 20131103

REACTIONS (8)
  - Somnolence [None]
  - Sleep disorder [None]
  - Dysarthria [None]
  - Coordination abnormal [None]
  - Hypoaesthesia oral [None]
  - Hallucination [None]
  - Confusional state [None]
  - Impaired work ability [None]
